FAERS Safety Report 8440056-2 (Version None)
Quarter: 2012Q2

REPORT INFORMATION
  Report Type: 
  Country: None (occurrence: None)
  Receive Date: 20120615
  Receipt Date: 20120611
  Transmission Date: 20120825
  Serious: Yes (Life-Threatening, Hospitalization)
  Sender: FDA-Public Use
  Company Number: US-ABBOTT-12P-163-0891447-00

PATIENT
  Sex: Female

DRUGS (11)
  1. SYNTHROID [Concomitant]
     Indication: THYROID DISORDER
  2. METHOTREXATE [Concomitant]
     Indication: RHEUMATOID ARTHRITIS
  3. VITAMIN TAB [Concomitant]
     Indication: VITAMIN SUPPLEMENTATION
     Dosage: DAILY
  4. VITAMIN D [Concomitant]
     Indication: PRODUCT USED FOR UNKNOWN INDICATION
     Dosage: DAILY
  5. FISH OIL [Concomitant]
     Indication: PRODUCT USED FOR UNKNOWN INDICATION
     Dosage: DAILY
  6. ACIDOPHILUS [Concomitant]
     Indication: BONE DISORDER
  7. UNKNOWN MEDICATION [Concomitant]
     Indication: DRY MOUTH
  8. CALCIUM [Concomitant]
     Indication: PRODUCT USED FOR UNKNOWN INDICATION
     Dosage: DAILY
  9. UNKNOWN BLOOD PRESSURE MEDICATION [Concomitant]
     Indication: BLOOD PRESSURE
  10. UNKNOWN MEDICATION [Concomitant]
     Indication: FLATULENCE
  11. HUMIRA [Suspect]
     Indication: RHEUMATOID ARTHRITIS
     Dates: start: 20110601

REACTIONS (20)
  - DRUG INEFFECTIVE [None]
  - DIZZINESS [None]
  - PAIN IN EXTREMITY [None]
  - JOINT SWELLING [None]
  - CHILLS [None]
  - NERVE COMPRESSION [None]
  - MUSCULOSKELETAL PAIN [None]
  - BLOOD PRESSURE DECREASED [None]
  - FEELING HOT [None]
  - CUTANEOUS LUPUS ERYTHEMATOSUS [None]
  - PYREXIA [None]
  - RETCHING [None]
  - NAUSEA [None]
  - VOMITING [None]
  - DIVERTICULUM [None]
  - UNEVALUABLE EVENT [None]
  - ABDOMINAL PAIN UPPER [None]
  - INJECTION SITE PAIN [None]
  - ARTHRALGIA [None]
  - HYPOPHAGIA [None]
